FAERS Safety Report 8343972-5 (Version None)
Quarter: 2012Q2

REPORT INFORMATION
  Report Type: 
  Country: None (occurrence: None)
  Receive Date: 20120508
  Receipt Date: 20120427
  Transmission Date: 20120825
  Serious: Yes (Other)
  Sender: FDA-Public Use
  Company Number: JP-VERTEX PHARMACEUTICALS INC.-AE-2012-006310

PATIENT
  Age: 71 Year
  Sex: Male

DRUGS (10)
  1. PEG-INTRON [Concomitant]
     Indication: HEPATITIS C
     Dates: start: 20120215
  2. REBETOL [Concomitant]
     Route: 048
     Dates: start: 20120329
  3. TELAVIC (TELAPREVIR) [Suspect]
     Indication: HEPATITIS C
     Route: 048
     Dates: start: 20120215, end: 20120426
  4. REBETOL [Concomitant]
     Route: 048
     Dates: start: 20120228, end: 20120308
  5. REBETOL [Concomitant]
     Route: 048
     Dates: start: 20120309, end: 20120314
  6. REBETOL [Concomitant]
     Indication: HEPATITIS C
     Route: 048
     Dates: start: 20120215, end: 20120227
  7. LOXONIN [Concomitant]
     Route: 048
  8. URSO 250 [Concomitant]
     Route: 048
  9. REBETOL [Concomitant]
     Route: 048
     Dates: start: 20120315, end: 20120328
  10. AZULENE-GLUTAMINE FINE GRANULES [Concomitant]
     Route: 048

REACTIONS (1)
  - DRUG ERUPTION [None]
